FAERS Safety Report 9667899 (Version 1)
Quarter: 2013Q4

REPORT INFORMATION
  Report Type: Spontaneous
  Country: FR (occurrence: FR)
  Receive Date: 20131104
  Receipt Date: 20131104
  Transmission Date: 20140711
  Serious: Yes (Death, Hospitalization)
  Sender: FDA-Public Use
  Company Number: FR-PFIZER INC-2013309628

PATIENT
  Age: 90 Year
  Sex: Female

DRUGS (7)
  1. EFFEXOR LP [Suspect]
     Dosage: 37.5 MG, DAILY
     Route: 048
     Dates: start: 20130410, end: 20130624
  2. CORDARONE [Interacting]
     Dosage: 100 MG, DAILY
     Route: 048
     Dates: end: 20130624
  3. XARELTO [Suspect]
     Dosage: 15 MG, DAILY
     Route: 048
     Dates: start: 20130410, end: 20130415
  4. LASILIX [Concomitant]
     Dosage: 40 MG, 1X/DAY
     Route: 048
     Dates: start: 20130410, end: 20130624
  5. CACIT D3 [Concomitant]
     Dosage: UNK
     Route: 048
     Dates: start: 20130410, end: 20130624
  6. KARDEGIC [Concomitant]
     Dosage: UNK
     Dates: end: 201304
  7. CARDENSIEL [Concomitant]
     Dosage: UNK
     Dates: end: 201304

REACTIONS (6)
  - Septic shock [Fatal]
  - Cardio-respiratory arrest [Fatal]
  - Intestinal infarction [Fatal]
  - Intestinal obstruction [Fatal]
  - Epistaxis [Recovered/Resolved]
  - Drug interaction [Unknown]
